FAERS Safety Report 10238484 (Version 1)
Quarter: 2014Q2

REPORT INFORMATION
  Report Type: Spontaneous
  Country: SE (occurrence: None)
  Receive Date: 20140612
  Receipt Date: 20140612
  Transmission Date: 20141212
  Serious: Yes (Other)
  Sender: FDA-Public Use
  Company Number: 20140327

PATIENT
  Age: 37 Year
  Sex: Female

DRUGS (1)
  1. FERINJECT [Suspect]
     Indication: IRON DEFICIENCY
     Dosage: 1 IN 1 TOTAL
     Route: 041
     Dates: start: 20140519, end: 20140519

REACTIONS (3)
  - Cough [None]
  - Infusion related reaction [None]
  - Dyspnoea [None]
